FAERS Safety Report 7641402-X (Version None)
Quarter: 2011Q3

REPORT INFORMATION
  Report Type: 
  Country: None (occurrence: None)
  Receive Date: 20110728
  Receipt Date: 20110720
  Transmission Date: 20111222
  Serious: Yes (Life-Threatening)
  Sender: FDA-Public Use
  Company Number: US-BAXTER-2011BH018662

PATIENT
  Age: 35 Month
  Sex: Male
  Weight: 70 kg

DRUGS (9)
  1. FEIBA VH [Suspect]
     Route: 042
     Dates: start: 20000906, end: 20000906
  2. NOVOSEVEN [Concomitant]
     Indication: FACTOR VIII DEFICIENCY
     Route: 065
     Dates: start: 19990101
  3. FEIBA VH [Suspect]
     Route: 042
     Dates: start: 20000926, end: 20000926
  4. FEIBA VH [Suspect]
     Indication: FACTOR VIII DEFICIENCY
     Route: 042
     Dates: start: 19981101, end: 20040101
  5. FEIBA VH [Suspect]
     Indication: FACTOR VIII INHIBITION
     Route: 042
     Dates: start: 19981101, end: 20040101
  6. FEIBA VH [Suspect]
     Route: 042
     Dates: start: 20000906, end: 20000906
  7. FEIBA VH [Suspect]
     Route: 042
     Dates: start: 20000926, end: 20000926
  8. FEIBA VH [Suspect]
     Route: 042
     Dates: start: 20000906, end: 20000906
  9. FEIBA VH [Suspect]
     Route: 042
     Dates: start: 20000906, end: 20000906

REACTIONS (6)
  - WHEEZING [None]
  - URTICARIA [None]
  - COUGH [None]
  - BRONCHOSPASM [None]
  - DYSPNOEA [None]
  - HYPERSENSITIVITY [None]
